FAERS Safety Report 7056169-6 (Version None)
Quarter: 2010Q4

REPORT INFORMATION
  Report Type: 
  Country: None (occurrence: None)
  Receive Date: 20101018
  Receipt Date: 20100917
  Transmission Date: 20110411
  Serious: No
  Sender: FDA-Public Use
  Company Number: 2010-00860

PATIENT
  Age: 51 Year
  Sex: Male
  Weight: 70.3075 kg

DRUGS (1)
  1. ZICAM COLD REMEDY ORAL MIST [Suspect]
     Dosage: QID X 6 DAYS
     Dates: start: 20100901, end: 20100907

REACTIONS (1)
  - AGEUSIA [None]
